FAERS Safety Report 8161592-2 (Version None)
Quarter: 2012Q1

REPORT INFORMATION
  Report Type: 
  Country: None (occurrence: None)
  Receive Date: 20120224
  Receipt Date: 20120215
  Transmission Date: 20120608
  Serious: Yes (Hospitalization, Other)
  Sender: FDA-Public Use
  Company Number: US-BAYER-2011-099563

PATIENT
  Age: 44 Year
  Sex: Female
  Weight: 59 kg

DRUGS (5)
  1. CHANTIX [Concomitant]
     Dosage: UNK
     Dates: start: 20090109
  2. ZOLOFT [Concomitant]
     Dosage: UNK UNK, PRN
  3. ANALGESICS [Concomitant]
  4. YAZ [Suspect]
     Indication: PREMENSTRUAL SYNDROME
     Dosage: UNK
     Dates: start: 20090715
  5. VITAMIN TAB [Concomitant]

REACTIONS (9)
  - ABDOMINAL OPERATION [None]
  - CHOLECYSTITIS [None]
  - INJURY [None]
  - ANXIETY [None]
  - GALLBLADDER INJURY [None]
  - PAIN [None]
  - DEPRESSION [None]
  - WEIGHT INCREASED [None]
  - DIARRHOEA [None]
